FAERS Safety Report 6876268-9 (Version None)
Quarter: 2010Q3

REPORT INFORMATION
  Report Type: 
  Country: None (occurrence: None)
  Receive Date: 20100727
  Receipt Date: 20100720
  Transmission Date: 20110219
  Serious: Yes (Hospitalization)
  Sender: FDA-Public Use
  Company Number: B0634958A

PATIENT
  Age: 70 Year
  Sex: Male

DRUGS (19)
  1. AVODART [Suspect]
     Dosage: .5G PER DAY
     Route: 048
     Dates: start: 20070216
  2. TAMSULOSIN HCL [Concomitant]
     Dates: start: 20070216, end: 20071011
  3. TICLOPIDINE HYDROCHLORIDE [Concomitant]
     Dates: start: 20070419
  4. DETRUSITOL [Concomitant]
     Dates: start: 20070419, end: 20090602
  5. BREXIN [Concomitant]
     Dates: start: 20070803, end: 20071011
  6. HYTRINE [Concomitant]
     Dosage: 4MG PER DAY
     Dates: start: 20070102
  7. VESICARE [Concomitant]
     Dosage: 5MG PER DAY
     Dates: start: 20090603
  8. AMITRIPTYLINE HYDROCHLORIDE [Concomitant]
     Dates: start: 20080407
  9. NEURONTIN [Concomitant]
     Dosage: 200MG PER DAY
     Dates: start: 20080407
  10. MUCOSTA [Concomitant]
     Dates: start: 20080407, end: 20080506
  11. SEROQUEL [Concomitant]
     Dates: start: 20080506
  12. VARIDASE [Concomitant]
     Dates: start: 20080509
  13. PHAZYME [Concomitant]
     Dates: start: 20080509, end: 20080515
  14. VALIUM [Concomitant]
     Dates: start: 20080509, end: 20080515
  15. RHONAL [Concomitant]
     Dates: start: 20080509, end: 20080515
  16. GANATON [Concomitant]
     Dates: start: 20090416
  17. MEGRAL [Concomitant]
     Dates: start: 20090406, end: 20090714
  18. ERYC [Concomitant]
     Dates: start: 20090406, end: 20090714
  19. ROWACHOL [Concomitant]
     Dates: start: 20090406, end: 20090714

REACTIONS (1)
  - PULMONARY EMBOLISM [None]
